FAERS Safety Report 9157593 (Version 2)
Quarter: 2013Q1

REPORT INFORMATION
  Report Type: Spontaneous
  Country: FR (occurrence: FR)
  Receive Date: 20130312
  Receipt Date: 20130328
  Transmission Date: 20140127
  Serious: Yes (Life-Threatening)
  Sender: FDA-Public Use
  Company Number: FR-JNJFOC-20130303815

PATIENT
  Age: 56 Year
  Sex: Female

DRUGS (4)
  1. DOXORUBICIN HYDROCHLORIDE (CAELYX) [Suspect]
     Indication: OVARIAN CANCER
     Route: 042
     Dates: start: 2012, end: 201301
  2. DOXORUBICIN HYDROCHLORIDE [Suspect]
     Indication: OVARIAN CANCER
     Route: 033
     Dates: start: 20130207, end: 20130207
  3. YONDELIS [Concomitant]
     Indication: PRODUCT USED FOR UNKNOWN INDICATION
     Route: 042
     Dates: start: 2012, end: 201301
  4. CISPLATINE [Concomitant]
     Indication: OVARIAN CANCER
     Route: 033
     Dates: start: 20130207, end: 20130207

REACTIONS (4)
  - Ejection fraction decreased [Recovered/Resolved]
  - Acute respiratory failure [Recovered/Resolved]
  - Acute pulmonary oedema [Recovering/Resolving]
  - Lung infection [Recovering/Resolving]
